FAERS Safety Report 21299209 (Version 2)
Quarter: 2022Q3

REPORT INFORMATION
  Report Type: Spontaneous
  Country: US (occurrence: US)
  Receive Date: 20220906
  Receipt Date: 20220919
  Transmission Date: 20221027
  Serious: Yes (Other)
  Sender: FDA-Public Use
  Company Number: US-PFIZER INC-202201117892

PATIENT
  Age: 80 Year
  Sex: Male
  Weight: 87.5 kg

DRUGS (1)
  1. INLYTA [Suspect]
     Active Substance: AXITINIB
     Indication: Renal cancer
     Dosage: 5 MG, 2X/DAY
     Dates: start: 20220825

REACTIONS (2)
  - Blood pressure increased [Unknown]
  - Stomatitis [Not Recovered/Not Resolved]
